FAERS Safety Report 23187715 (Version 2)
Quarter: 2023Q4

REPORT INFORMATION
  Report Type: Other
  Country: US (occurrence: US)
  Receive Date: 20231115
  Receipt Date: 20231116
  Transmission Date: 20240109
  Serious: No
  Sender: FDA-Public Use
  Company Number: US-TRAVERE-2023TVT00595

PATIENT
  Age: 56 Year
  Sex: Male

DRUGS (3)
  1. FILSPARI [Suspect]
     Active Substance: SPARSENTAN
     Indication: IgA nephropathy
     Route: 048
     Dates: start: 20230927
  2. FILSPARI [Suspect]
     Active Substance: SPARSENTAN
     Route: 048
  3. ENALAPRIL [Concomitant]
     Active Substance: ENALAPRIL

REACTIONS (2)
  - Blood pressure decreased [Unknown]
  - Protein total decreased [Recovered/Resolved]

NARRATIVE: CASE EVENT DATE: 20230927
